FAERS Safety Report 5530309-X (Version None)
Quarter: 2007Q4

REPORT INFORMATION
  Report Type: 
  Country: None (occurrence: None)
  Receive Date: 20071127
  Receipt Date: 20071127
  Transmission Date: 20080405
  Serious: Yes (Other)
  Sender: FDA-Public Use
  Company Number: None

PATIENT
  Age: 24 Year
  Sex: Female
  Weight: 56.6996 kg

DRUGS (1)
  1. LUPRON [Suspect]
     Indication: ENDOMETRIOSIS
     Dosage: 3.75 MG MONTHLY IM
     Route: 030
     Dates: start: 20070428, end: 20070627

REACTIONS (53)
  - ABDOMINAL DISTENSION [None]
  - ACNE [None]
  - ALOPECIA [None]
  - ANXIETY [None]
  - ARTHRALGIA [None]
  - BLADDER SPASM [None]
  - BLINDNESS UNILATERAL [None]
  - BREAST CYST [None]
  - BREAST PAIN [None]
  - BREAST SWELLING [None]
  - BURNING SENSATION [None]
  - CONSTIPATION [None]
  - DEPRESSION [None]
  - DIARRHOEA [None]
  - DIPLOPIA [None]
  - DISTURBANCE IN ATTENTION [None]
  - DIZZINESS [None]
  - DYSPNOEA [None]
  - EPISTAXIS [None]
  - FATIGUE [None]
  - FLATULENCE [None]
  - HAIR GROWTH ABNORMAL [None]
  - HEADACHE [None]
  - HEART RATE INCREASED [None]
  - HOT FLUSH [None]
  - HYPOAESTHESIA [None]
  - INTESTINAL FUNCTIONAL DISORDER [None]
  - LIBIDO DECREASED [None]
  - MENTAL DISORDER [None]
  - MICTURITION URGENCY [None]
  - MOOD SWINGS [None]
  - MUSCLE SPASMS [None]
  - MYALGIA [None]
  - NAUSEA [None]
  - NIGHTMARE [None]
  - OEDEMA PERIPHERAL [None]
  - PAIN IN EXTREMITY [None]
  - PARAESTHESIA [None]
  - PELVIC PAIN [None]
  - PRESYNCOPE [None]
  - PROCTALGIA [None]
  - PRURITUS [None]
  - SENSATION OF PRESSURE [None]
  - SKIN ODOUR ABNORMAL [None]
  - SLEEP DISORDER [None]
  - STOMACH DISCOMFORT [None]
  - SWELLING [None]
  - URTICARIA [None]
  - VAGINAL PAIN [None]
  - VISUAL DISTURBANCE [None]
  - VISUAL FIELD DEFECT [None]
  - VITREOUS FLOATERS [None]
  - WEIGHT FLUCTUATION [None]
